FAERS Safety Report 15195422 (Version 1)
Quarter: 2018Q3

REPORT INFORMATION
  Report Type: Spontaneous
  Country: FR (occurrence: FR)
  Receive Date: 20180725
  Receipt Date: 20180725
  Transmission Date: 20181010
  Serious: Yes (Hospitalization)
  Sender: FDA-Public Use
  Company Number: FR-PFIZER INC-2018292604

PATIENT
  Age: 72 Year
  Sex: Male
  Weight: 101 kg

DRUGS (1)
  1. DOCETAXEL HOSPIRA [Suspect]
     Active Substance: DOCETAXEL
     Indication: PROSTATE CANCER
     Dosage: 100MG/CURE
     Route: 041
     Dates: start: 20180420

REACTIONS (1)
  - Peptic ulcer [Not Recovered/Not Resolved]

NARRATIVE: CASE EVENT DATE: 201804
